FAERS Safety Report 9632709 (Version 1)
Quarter: 2013Q4

REPORT INFORMATION
  Report Type: Report from Study
  Country: US (occurrence: US)
  Receive Date: 20131018
  Receipt Date: 20131018
  Transmission Date: 20140711
  Serious: Yes (Hospitalization)
  Sender: FDA-Public Use
  Company Number: US-ROCHE-1289377

PATIENT
  Age: 70 Year
  Sex: Male
  Weight: 92 kg

DRUGS (3)
  1. BEVACIZUMAB [Suspect]
     Indication: NEUROENDOCRINE CARCINOMA
     Dosage: 28 DAYS CYCLE: 10 MG/KG OVER 30-90 MINUTES ON DAY 1 AND 15.?LAST DOSE PRIOR TO SAE: 30/AUG/2013, 723
     Route: 042
     Dates: start: 20120906
  2. EVEROLIMUS [Suspect]
     Indication: NEUROENDOCRINE CARCINOMA
     Dosage: 28 DAYS CYCLE.?LAST DOSE PRIOR TO SAE: 31/AUG/2013, 20 MG
     Route: 048
     Dates: start: 20120906
  3. OCTREOTIDE ACETATE [Suspect]
     Indication: NEUROENDOCRINE CARCINOMA
     Dosage: 28 DAYS CYCLE: ON DAY 1?LAST DOSE PRIOR TO SAE: 30/AUG/2013, 30 MG
     Route: 030
     Dates: start: 20120906

REACTIONS (3)
  - Encephalopathy [Unknown]
  - Embolism [Unknown]
  - International normalised ratio increased [Unknown]
